FAERS Safety Report 24736838 (Version 2)
Quarter: 2024Q4

REPORT INFORMATION
  Report Type: Spontaneous
  Country: US (occurrence: US)
  Receive Date: 20241216
  Receipt Date: 20241225
  Transmission Date: 20250114
  Serious: Yes (Hospitalization)
  Sender: CATALYST PHARMA
  Company Number: US-CATALYST PHARMACEUTICALS-US-CATA-24-01479

PATIENT
  Age: 28 Year
  Sex: Male
  Weight: 77.687 kg

DRUGS (17)
  1. AGAMREE [Suspect]
     Active Substance: VAMOROLONE
     Indication: Duchenne muscular dystrophy
     Dosage: 7.5 ML ONCE DAILY
     Route: 048
     Dates: start: 20240409, end: 20241124
  2. ZOLEDRONIC ACID [Concomitant]
     Active Substance: ZOLEDRONIC ACID
     Indication: Osteoporosis
     Dosage: 5 MG EVERY 6 MONTHS
     Route: 042
  3. CLINDAMYCIN [Concomitant]
     Active Substance: CLINDAMYCIN
     Indication: Skin disorder
     Dosage: TWICE A DAY
     Route: 061
  4. CITALOPRAM [Concomitant]
     Active Substance: CITALOPRAM
     Indication: Anxiety
     Dosage: 20 MG ONCE A DAY
     Route: 065
  5. CITALOPRAM [Concomitant]
     Active Substance: CITALOPRAM
     Indication: Depression
  6. LISINOPRIL [Concomitant]
     Active Substance: LISINOPRIL
     Indication: Cardiovascular disorder
     Dosage: 20 MG ONCE A DAY
     Route: 065
  7. COENZYME Q10 [Concomitant]
     Active Substance: DIETARY SUPPLEMENT\UBIDECARENONE
     Indication: Cardiovascular disorder
     Dosage: 200 MG ONCE PER DAY
     Route: 065
  8. EPLERENONE [Concomitant]
     Active Substance: EPLERENONE
     Indication: Cardiovascular disorder
     Dosage: 25 MG TWICE A DAY
     Route: 065
  9. ALBUTEROL [Concomitant]
     Active Substance: ALBUTEROL
     Indication: Bronchospasm
     Dosage: 1 VIAL ONCE A DAY
     Route: 055
  10. LINZESS [Concomitant]
     Active Substance: LINACLOTIDE
     Indication: Constipation
     Dosage: 145 MCG DAILY
     Route: 065
  11. LINZESS [Concomitant]
     Active Substance: LINACLOTIDE
     Indication: Flatulence
  12. CALCIUM CITRATE [Concomitant]
     Active Substance: CALCIUM CITRATE
     Indication: Osteoporosis
     Dosage: 200 MG TWICE A DAY
     Route: 065
  13. VITAMIN D3 [Concomitant]
     Active Substance: CHOLECALCIFEROL
     Indication: Bone disorder
     Dosage: 2000 UNITS ONCE A DAY
     Route: 065
  14. GAS-X EXTRA STRENGTH [Concomitant]
     Active Substance: DIMETHICONE
     Indication: Flatulence
     Dosage: 125 MG THREE TIMES DAILY
     Route: 065
  15. FLUTICASONE [Concomitant]
     Active Substance: FLUTICASONE
     Indication: Hypersensitivity
     Dosage: 2 SPRAYS IF NEEDED
     Route: 045
  16. PREDNISONE [Concomitant]
     Active Substance: PREDNISONE
     Indication: Duchenne muscular dystrophy
     Dosage: UNKNOWN
     Route: 065
     Dates: start: 20241129, end: 20241201
  17. DEFLAZACORT [Concomitant]
     Active Substance: DEFLAZACORT
     Indication: Duchenne muscular dystrophy
     Dosage: UNKNOWN
     Route: 065
     Dates: start: 20241202

REACTIONS (1)
  - Adrenocortical insufficiency acute [Not Recovered/Not Resolved]

NARRATIVE: CASE EVENT DATE: 20241124
